FAERS Safety Report 15540213 (Version 1)
Quarter: 2018Q4

REPORT INFORMATION
  Report Type: Spontaneous
  Country: TW (occurrence: TW)
  Receive Date: 20181023
  Receipt Date: 20181023
  Transmission Date: 20190205
  Serious: Yes (Hospitalization, Other)
  Sender: FDA-Public Use
  Company Number: TW-ELI_LILLY_AND_COMPANY-TW201810007746

PATIENT
  Age: 77 Year
  Sex: Female
  Weight: 61 kg

DRUGS (9)
  1. PEMETREXED. [Suspect]
     Active Substance: PEMETREXED
     Dosage: 437 MG/M2, UNKNOWN
     Route: 065
  2. ATORVASTATIN [Concomitant]
     Active Substance: ATORVASTATIN
     Indication: PRODUCT USED FOR UNKNOWN INDICATION
     Dosage: 10 MG, DAILY
     Route: 065
  3. TRAMADOL AND ACETAMINOPHEN [Concomitant]
     Active Substance: ACETAMINOPHEN\TRAMADOL HYDROCHLORIDE
     Indication: PRODUCT USED FOR UNKNOWN INDICATION
     Dosage: 75650 MG, BID
     Route: 065
  4. VITAMIN B12                        /07503801/ [Concomitant]
     Indication: SUPPLEMENTATION THERAPY
     Dosage: 1000 UG, SINGLE
     Route: 030
  5. PEMETREXED. [Suspect]
     Active Substance: PEMETREXED
     Dosage: 500 MG/M2, EVERY 4 WEEKS
     Route: 065
  6. PROTAMINE INSULIN ASPART [Concomitant]
     Active Substance: INSULIN ASPART
     Indication: PRODUCT USED FOR UNKNOWN INDICATION
     Dosage: 2828 IU, BID
     Route: 065
  7. PEMETREXED. [Suspect]
     Active Substance: PEMETREXED
     Indication: LUNG ADENOCARCINOMA STAGE IV
     Dosage: 500 MG/M2, CYCLICAL
     Route: 065
     Dates: start: 201408
  8. CISPLATIN. [Suspect]
     Active Substance: CISPLATIN
     Indication: LUNG ADENOCARCINOMA STAGE IV
     Dosage: 60 MG/M2, CYCLICAL
     Route: 065
     Dates: start: 201406
  9. INSULIN ASPART [Concomitant]
     Active Substance: INSULIN ASPART
     Indication: PRODUCT USED FOR UNKNOWN INDICATION
     Dosage: 16 IU, DAILY
     Route: 065

REACTIONS (9)
  - Renal failure [Unknown]
  - Chronic kidney disease [Unknown]
  - Anaemia [Unknown]
  - Anaemia [Recovered/Resolved]
  - Rash [Unknown]
  - Oedema [Unknown]
  - Decreased appetite [Recovered/Resolved]
  - Asthma [Unknown]
  - Infection [Unknown]
